FAERS Safety Report 21018757 (Version 1)
Quarter: 2022Q2

REPORT INFORMATION
  Report Type: Spontaneous
  Country: HU (occurrence: HU)
  Receive Date: 20220628
  Receipt Date: 20220628
  Transmission Date: 20220720
  Serious: Yes (Hospitalization, Other)
  Sender: FDA-Public Use
  Company Number: HU-002147023-NVSC2022HU141454

PATIENT

DRUGS (1)
  1. RUXOLITINIB [Suspect]
     Active Substance: RUXOLITINIB
     Indication: Myelofibrosis
     Dosage: 20 MG
     Route: 065
     Dates: start: 201908, end: 202107

REACTIONS (7)
  - Back pain [Unknown]
  - Intervertebral disc disorder [Unknown]
  - Pneumonia [Unknown]
  - Pulmonary mass [Recovering/Resolving]
  - Lung disorder [Recovering/Resolving]
  - Neurological examination abnormal [Recovering/Resolving]
  - Cytopenia [Recovered/Resolved]

NARRATIVE: CASE EVENT DATE: 20210601
